FAERS Safety Report 9850563 (Version 3)
Quarter: 2014Q1

REPORT INFORMATION
  Report Type: Spontaneous
  Country: IT (occurrence: IT)
  Receive Date: 20140128
  Receipt Date: 20140327
  Transmission Date: 20141002
  Serious: Yes (Life-Threatening)
  Sender: FDA-Public Use
  Company Number: IT-ABBVIE-14P-083-1195123-00

PATIENT
  Age: 31 Year
  Sex: Male

DRUGS (2)
  1. DEPAKINE [Suspect]
     Indication: PSYCHOTIC DISORDER
     Route: 048
     Dates: start: 20131102, end: 20131102
  2. ENTUMIN [Suspect]
     Indication: PSYCHOTIC DISORDER
     Route: 048
     Dates: start: 20131102, end: 20131102

REACTIONS (3)
  - Cyanosis [Recovering/Resolving]
  - Drug abuse [Recovering/Resolving]
  - Coma [Recovering/Resolving]
